FAERS Safety Report 24683571 (Version 1)
Quarter: 2024Q4

REPORT INFORMATION
  Report Type: Spontaneous
  Country: AT (occurrence: AT)
  Receive Date: 20241201
  Receipt Date: 20241201
  Transmission Date: 20250115
  Serious: Yes (Life-Threatening, Other)
  Sender: TAKEDA
  Company Number: AT-GERMAN-LIT/AUT/24/0017075

PATIENT
  Age: 75 Year
  Sex: Male

DRUGS (16)
  1. VELCADE [Suspect]
     Active Substance: BORTEZOMIB
     Indication: Encephalomyelitis
     Dosage: UNK
  2. VELCADE [Suspect]
     Active Substance: BORTEZOMIB
     Indication: Muscle rigidity
  3. VELCADE [Suspect]
     Active Substance: BORTEZOMIB
     Indication: Myoclonus
  4. CYCLOPHOSPHAMIDE [Suspect]
     Active Substance: CYCLOPHOSPHAMIDE
     Dosage: UNK
  5. METHYLPREDNISOLONE [Concomitant]
     Active Substance: METHYLPREDNISOLONE
     Indication: Encephalomyelitis
     Dosage: UNK
  6. METHYLPREDNISOLONE [Concomitant]
     Active Substance: METHYLPREDNISOLONE
     Indication: Muscle rigidity
  7. METHYLPREDNISOLONE [Concomitant]
     Active Substance: METHYLPREDNISOLONE
     Indication: Myoclonus
  8. Immunoglobulin [Concomitant]
     Indication: Encephalomyelitis
     Dosage: UNK
  9. Immunoglobulin [Concomitant]
     Indication: Muscle rigidity
  10. Immunoglobulin [Concomitant]
     Indication: Myoclonus
  11. METHOTREXATE [Concomitant]
     Active Substance: METHOTREXATE
     Indication: Encephalomyelitis
     Dosage: UNK
  12. METHOTREXATE [Concomitant]
     Active Substance: METHOTREXATE
     Indication: Muscle rigidity
  13. METHOTREXATE [Concomitant]
     Active Substance: METHOTREXATE
     Indication: Myoclonus
  14. ISOFLURANE [Concomitant]
     Active Substance: ISOFLURANE
     Indication: Encephalomyelitis
     Dosage: UNK
  15. ISOFLURANE [Concomitant]
     Active Substance: ISOFLURANE
     Indication: Muscle rigidity
  16. ISOFLURANE [Concomitant]
     Active Substance: ISOFLURANE
     Indication: Myoclonus

REACTIONS (1)
  - Drug ineffective for unapproved indication [Unknown]
